FAERS Safety Report 7476653-0 (Version None)
Quarter: 2011Q2

REPORT INFORMATION
  Report Type: 
  Country: None (occurrence: None)
  Receive Date: 20110512
  Receipt Date: 20110503
  Transmission Date: 20111010
  Serious: Yes (Disabling, Other)
  Sender: FDA-Public Use
  Company Number: PT-ASTRAZENECA-2011SE20458

PATIENT
  Age: 85 Year
  Sex: Female
  Weight: 50 kg

DRUGS (6)
  1. LORENIN [Concomitant]
     Indication: ANXIETY
     Route: 048
     Dates: start: 20080101, end: 20110301
  2. SEROQUEL [Suspect]
     Indication: DEMENTIA
     Route: 048
     Dates: start: 20080101, end: 20110301
  3. SEROQUEL [Suspect]
     Indication: CONFUSIONAL STATE
     Route: 048
     Dates: start: 20080101, end: 20110301
  4. MEMANTINE HYDROCHLORIDE [Concomitant]
     Indication: DEMENTIA ALZHEIMER'S TYPE
     Route: 048
     Dates: start: 20090101
  5. SEROQUEL [Suspect]
     Indication: PSYCHOTIC DISORDER
     Route: 048
     Dates: start: 20080101, end: 20110301
  6. LORENIN [Concomitant]
     Indication: INSOMNIA
     Route: 048
     Dates: start: 20080101, end: 20110301

REACTIONS (7)
  - PARALYSIS [None]
  - CEREBROVASCULAR ACCIDENT [None]
  - DYSTONIA [None]
  - VOMITING [None]
  - DYSPHAGIA [None]
  - MUSCULOSKELETAL STIFFNESS [None]
  - DYSPNOEA [None]
